FAERS Safety Report 4725887-4 (Version None)
Quarter: 2005Q3

REPORT INFORMATION
  Report Type: 
  Country: None (occurrence: None)
  Receive Date: 20050722
  Receipt Date: 20050722
  Transmission Date: 20060218
  Serious: No
  Sender: FDA-Public Use
  Company Number: None

PATIENT
  Age: 54 Year
  Sex: Male
  Weight: 118.8424 kg

DRUGS (2)
  1. LUNESTA [Suspect]
     Indication: INSOMNIA
     Dosage: 3 MG
     Dates: start: 20050624, end: 20050713
  2. ARTHROTEC [Suspect]
     Dosage: PO  QHS
     Route: 048

REACTIONS (3)
  - ANXIETY [None]
  - CRYING [None]
  - PRURITUS GENERALISED [None]
